FAERS Safety Report 23362715 (Version 1)
Quarter: 2024Q1

REPORT INFORMATION
  Report Type: Spontaneous
  Country: US (occurrence: US)
  Receive Date: 20240103
  Receipt Date: 20240103
  Transmission Date: 20240410
  Serious: Yes (Other)
  Sender: FDA-Public Use
  Company Number: US-002147023-NVSC2023US276660

PATIENT
  Age: 84 Year
  Sex: Female
  Weight: 71.66 kg

DRUGS (1)
  1. LEQVIO [Suspect]
     Active Substance: INCLISIRAN SODIUM
     Indication: Product used for unknown indication
     Dosage: 284 MG (Q 6 MONTHS)
     Route: 058
     Dates: start: 20230921, end: 20230921

REACTIONS (6)
  - Hemiparesis [Recovering/Resolving]
  - Tremor [Recovering/Resolving]
  - Labile hypertension [Recovering/Resolving]
  - Sensory loss [Recovered/Resolved]
  - Myalgia [Recovering/Resolving]
  - Asthenia [Recovering/Resolving]

NARRATIVE: CASE EVENT DATE: 20231003
